FAERS Safety Report 6365624-3 (Version None)
Quarter: 2009Q3

REPORT INFORMATION
  Report Type: 
  Country: None (occurrence: None)
  Receive Date: 20090919
  Receipt Date: 20090820
  Transmission Date: 20100115
  Serious: No
  Sender: FDA-Public Use
  Company Number: US-ABBOTT-09P-163-0593086-00

PATIENT
  Sex: Female
  Weight: 74.91 kg

DRUGS (19)
  1. HUMIRA [Suspect]
     Indication: RHEUMATOID ARTHRITIS
     Dates: start: 20090201, end: 20090816
  2. HUMIRA [Suspect]
     Dates: start: 20090820
  3. ADVAIR HFA [Concomitant]
     Indication: ASTHMA
     Route: 055
  4. LEXAPRO [Concomitant]
     Indication: DEPRESSION
  5. PEPCID [Concomitant]
     Indication: GASTROOESOPHAGEAL REFLUX DISEASE
  6. LYRICA [Concomitant]
     Indication: NEUROPATHY PERIPHERAL
  7. CELEBREX [Concomitant]
     Indication: DRUG USE FOR UNKNOWN INDICATION
  8. FOLIC ACID [Concomitant]
     Indication: NEUROPATHY PERIPHERAL
  9. LEVOTHYROXINE SODIUM [Concomitant]
     Indication: HYPOTHYROIDISM
  10. METHAZOLAMID [Concomitant]
     Indication: MENIERE'S DISEASE
  11. METHOTREXATE [Concomitant]
     Indication: RHEUMATOID ARTHRITIS
     Dates: end: 20090817
  12. METHOTREXATE [Concomitant]
     Dates: start: 20090818
  13. PREDNISONE [Concomitant]
     Indication: RHEUMATOID ARTHRITIS
  14. PROAIR HFA [Concomitant]
     Indication: DRUG USE FOR UNKNOWN INDICATION
  15. SINGULAIR [Concomitant]
     Indication: ASTHMA
  16. SINGULAIR [Concomitant]
     Indication: HYPERSENSITIVITY
  17. OMNARIS [Concomitant]
     Indication: HYPERSENSITIVITY
  18. ACIPHEX [Concomitant]
     Indication: GASTROOESOPHAGEAL REFLUX DISEASE
  19. AMBIEN CR [Concomitant]
     Indication: INSOMNIA

REACTIONS (4)
  - DIVERTICULITIS [None]
  - DRUG HYPERSENSITIVITY [None]
  - ERYTHEMA [None]
  - PRURITUS [None]
